FAERS Safety Report 9254065 (Version 1)
Quarter: 2013Q1

REPORT INFORMATION
  Report Type: Spontaneous
  Country: US (occurrence: None)
  Receive Date: 20121203
  Receipt Date: 20121203
  Transmission Date: 20140127
  Serious: Yes (Hospitalization, Other)
  Sender: FDA-Public Use
  Company Number: 2012SP006666

PATIENT
  Age: 25 Year
  Sex: Female
  Weight: 65.77 kg

DRUGS (1)
  1. NUVARING [Suspect]
     Indication: CONTRACEPTION
     Dosage: UNK, VAGINAL
     Route: 067

REACTIONS (8)
  - Pulmonary embolism [None]
  - Deep vein thrombosis [None]
  - Dysfunctional uterine bleeding [None]
  - Dyspnoea [None]
  - Asthenia [None]
  - Arthropod bite [None]
  - Varicose vein [None]
  - Asthma [None]
